FAERS Safety Report 5915688-3 (Version None)
Quarter: 2008Q4

REPORT INFORMATION
  Report Type: 
  Country: None (occurrence: None)
  Receive Date: 20081010
  Receipt Date: 20080930
  Transmission Date: 20090506
  Serious: Yes (Hospitalization)
  Sender: FDA-Public Use
  Company Number: KR-PFIZER INC-2008079462

PATIENT
  Sex: Male
  Weight: 53.2 kg

DRUGS (5)
  1. SUTENT [Suspect]
     Indication: RENAL CELL CARCINOMA
     Route: 048
     Dates: start: 20080813, end: 20080828
  2. FAMOTIDINE [Concomitant]
     Dates: start: 20080801, end: 20080902
  3. TYLENOL (CAPLET) [Concomitant]
     Dates: start: 20080819, end: 20080819
  4. NORVASC [Concomitant]
     Dates: start: 20080826
  5. ULTRACET [Concomitant]
     Dates: start: 20080826, end: 20080905

REACTIONS (1)
  - CHOLECYSTITIS [None]
